FAERS Safety Report 5013859-4 (Version None)
Quarter: 2006Q2

REPORT INFORMATION
  Report Type: 
  Country: None (occurrence: None)
  Receive Date: 20060530
  Receipt Date: 20060517
  Transmission Date: 20061013
  Serious: Yes (Hospitalization)
  Sender: FDA-Public Use
  Company Number: GB-ROCHE-448322

PATIENT
  Age: 33 Year
  Sex: Female

DRUGS (8)
  1. FUZEON [Suspect]
     Route: 065
  2. VIRACEPT [Suspect]
     Route: 065
  3. EPIVIR [Suspect]
     Route: 065
  4. VIRAMUNE [Suspect]
     Route: 065
  5. VIREAD [Suspect]
     Route: 065
  6. NORVIR [Suspect]
     Route: 065
  7. FOSAMPRENAVIR [Suspect]
     Route: 065
  8. COMBIVIR [Suspect]
     Route: 065

REACTIONS (6)
  - CAESAREAN SECTION [None]
  - DRUG EXPOSURE DURING PREGNANCY [None]
  - MULTIPLE-DRUG RESISTANCE [None]
  - NAUSEA [None]
  - VIRAL LOAD INCREASED [None]
  - VOMITING [None]
